FAERS Safety Report 9946128 (Version 1)
Quarter: 2014Q1

REPORT INFORMATION
  Report Type: Spontaneous
  Country: US (occurrence: US)
  Receive Date: 20140303
  Receipt Date: 20140303
  Transmission Date: 20141002
  Serious: No
  Sender: FDA-Public Use
  Company Number: US-AMGEN-USASP2013069980

PATIENT
  Age: 52 Year
  Sex: Female
  Weight: 74.83 kg

DRUGS (7)
  1. ENBREL [Suspect]
     Indication: PRODUCT USED FOR UNKNOWN INDICATION
     Dosage: 50 MG, EVERY WEEK
     Route: 058
  2. VITAMIN B12                        /00056201/ [Concomitant]
     Dosage: 250 MUG, UNK
  3. SULFASALAZIN [Concomitant]
     Dosage: 500 MG, UNK
  4. MELOXICAM [Concomitant]
     Dosage: 7.5 MG, UNK
  5. FOLIC ACID [Concomitant]
     Dosage: UNK
  6. CRANBERRY                          /01512301/ [Concomitant]
     Dosage: UNK
  7. MULTIVITAMINS, PLAIN [Concomitant]
     Dosage: UNK

REACTIONS (1)
  - Nasopharyngitis [Unknown]
